FAERS Safety Report 7088042-1 (Version None)
Quarter: 2010Q4

REPORT INFORMATION
  Report Type: 
  Country: None (occurrence: None)
  Receive Date: 20101014
  Receipt Date: 20070709
  Transmission Date: 20110411
  Serious: Yes (Other)
  Sender: FDA-Public Use
  Company Number: 2010-00869

PATIENT
  Age: 48 Year
  Sex: Male
  Weight: 95.2554 kg

DRUGS (4)
  1. ZICAM COLD REMEDY NASAL GEL SWABS [Suspect]
     Indication: NASOPHARYNGITIS
     Dosage: 1 DOSE
     Dates: start: 20061001
  2. ZICAM EXTREME CONGESTION RELIEF [Suspect]
  3. ZICAM COLD REMEDY NASAL GEL [Suspect]
     Indication: NASOPHARYNGITIS
     Dosage: 1 DOSE
     Dates: start: 20061001
  4. PRILOSEC [Concomitant]

REACTIONS (11)
  - AGEUSIA [None]
  - ANOSMIA [None]
  - BURNING SENSATION [None]
  - CONDITION AGGRAVATED [None]
  - FACIAL PAIN [None]
  - NASAL SEPTUM DEVIATION [None]
  - NASAL TURBINATE ABNORMALITY [None]
  - PURULENCE [None]
  - RHINALGIA [None]
  - SINUSITIS [None]
  - UPPER AIRWAY OBSTRUCTION [None]
